FAERS Safety Report 10919219 (Version 2)
Quarter: 2015Q1

REPORT INFORMATION
  Report Type: Spontaneous
  Country: US (occurrence: US)
  Receive Date: 20150316
  Receipt Date: 20150317
  Transmission Date: 20150721
  Serious: No
  Sender: FDA-Public Use
  Company Number: US-TEVA-547024USA

PATIENT
  Sex: Male

DRUGS (1)
  1. PROAIR HFA [Suspect]
     Active Substance: ALBUTEROL SULFATE
     Route: 055

REACTIONS (5)
  - Product taste abnormal [Unknown]
  - Malaise [Unknown]
  - Pruritus generalised [Unknown]
  - Dysgeusia [Unknown]
  - Hyperhidrosis [Unknown]
